FAERS Safety Report 5925941-5 (Version None)
Quarter: 2008Q4

REPORT INFORMATION
  Report Type: 
  Country: None (occurrence: None)
  Receive Date: 20081021
  Receipt Date: 20081010
  Transmission Date: 20090506
  Serious: No
  Sender: FDA-Public Use
  Company Number: US-B.I. PHARMACEUTICALS,INC./RIDGEFIELD-2008-BP-14858BP

PATIENT
  Age: 68 Year
  Sex: Female

DRUGS (11)
  1. COMBIVENT [Suspect]
     Indication: ASTHMA
     Dosage: 12PUF
     Route: 055
     Dates: start: 19980101
  2. SEREVENT [Concomitant]
     Route: 055
  3. FLUTICASONE PROPIONATE NASAL SPRAY [Concomitant]
  4. ALBUTEROL [Concomitant]
  5. NEXIUM [Concomitant]
     Dosage: 80MG
     Route: 048
  6. FEXOFENADINE [Concomitant]
  7. SINGULAIR [Concomitant]
  8. 1 A DAY VITAMIN [Concomitant]
  9. GLUCOSAMINE CHONDROITIN [Concomitant]
  10. COQ10 [Concomitant]
  11. CALCIUM + D [Concomitant]

REACTIONS (3)
  - COUGH [None]
  - DYSPNOEA [None]
  - LARYNGITIS [None]
